FAERS Safety Report 26099461 (Version 1)
Quarter: 2025Q4

REPORT INFORMATION
  Report Type: Spontaneous
  Country: CH (occurrence: CH)
  Receive Date: 20251128
  Receipt Date: 20251128
  Transmission Date: 20260118
  Serious: Yes (Death)
  Sender: ROCHE
  Company Number: CH-ROCHE-10000442943

PATIENT
  Age: 13 Year
  Sex: Female

DRUGS (1)
  1. AVASTIN [Suspect]
     Active Substance: BEVACIZUMAB
     Indication: Glioma
     Route: 065
     Dates: start: 202403

REACTIONS (2)
  - Disease progression [Fatal]
  - Off label use [Unknown]

NARRATIVE: CASE EVENT DATE: 20240301
